FAERS Safety Report 20494992 (Version 1)
Quarter: 2022Q1

REPORT INFORMATION
  Report Type: Other
  Country: US (occurrence: None)
  Receive Date: 20220221
  Receipt Date: 20220221
  Transmission Date: 20220423
  Serious: Yes (Other)
  Sender: FDA-Public Use
  Company Number: US-ROCHE-3028277

PATIENT

DRUGS (9)
  1. RITUXIMAB [Suspect]
     Active Substance: RITUXIMAB
     Indication: Diffuse large B-cell lymphoma
     Dosage: STANDARD DOSES ON DAYS 1-5 OF EACH 21-DAY CYCLE
     Route: 042
  2. ETOPOSIDE [Suspect]
     Active Substance: ETOPOSIDE
     Indication: Diffuse large B-cell lymphoma
     Dosage: STANDARD DOSES ON DAYS 1-5 OF EACH 21-DAY CYCLE
     Route: 042
  3. PREDNISONE [Suspect]
     Active Substance: PREDNISONE
     Indication: Diffuse large B-cell lymphoma
     Dosage: STANDARD DOSES ON DAYS 1-5 OF EACH 21-DAY CYCLE
     Route: 048
  4. VINCRISTINE [Suspect]
     Active Substance: VINCRISTINE
     Indication: Diffuse large B-cell lymphoma
     Dosage: STANDARD DOSES ON DAYS 1-5 OF EACH 21-DAY CYCLE
     Route: 042
  5. CYCLOPHOSPHAMIDE [Suspect]
     Active Substance: CYCLOPHOSPHAMIDE
     Indication: Diffuse large B-cell lymphoma
     Dosage: STANDARD DOSES ON DAYS 1-5 OF EACH 21-DAY CYCLE
     Route: 042
  6. DOXORUBICIN [Suspect]
     Active Substance: DOXORUBICIN
     Indication: Diffuse large B-cell lymphoma
     Dosage: STANDARD DOSES ON DAYS 1-5 OF EACH 21-DAY CYCLE
     Route: 042
  7. IBRUTINIB [Suspect]
     Active Substance: IBRUTINIB
     Indication: Diffuse large B-cell lymphoma
     Route: 048
  8. LENALIDOMIDE [Suspect]
     Active Substance: LENALIDOMIDE
     Indication: Diffuse large B-cell lymphoma
     Dosage: (ESCALATING DOSES: 0 [LEVEL 1], 15 [LEVEL 2], 20 [LEVEL 3], AND 25 [LEVEL 4] MG) ON DAYS 1-7 OF EACH
     Route: 048
  9. PEGFILGRASTIM [Concomitant]
     Active Substance: PEGFILGRASTIM
     Route: 058

REACTIONS (21)
  - Febrile neutropenia [Unknown]
  - Anaemia [Unknown]
  - Hypotension [Unknown]
  - Hypokalaemia [Unknown]
  - Leukopenia [Unknown]
  - Neutropenia [Unknown]
  - Thrombocytopenia [Unknown]
  - Arrhythmia [Unknown]
  - Platelet count decreased [Unknown]
  - Fatigue [Unknown]
  - Nausea [Unknown]
  - Constipation [Unknown]
  - Diarrhoea [Unknown]
  - Sinus tachycardia [Unknown]
  - Abdominal pain [Unknown]
  - Decreased appetite [Unknown]
  - Dehydration [Unknown]
  - Weight decreased [Unknown]
  - Hypoalbuminaemia [Unknown]
  - Back pain [Unknown]
  - Anxiety [Unknown]
